FAERS Safety Report 6713621-8 (Version None)
Quarter: 2010Q2

REPORT INFORMATION
  Report Type: 
  Country: None (occurrence: None)
  Receive Date: 20100506
  Receipt Date: 20100430
  Transmission Date: 20101027
  Serious: Yes (Other)
  Sender: FDA-Public Use
  Company Number: A0857507A

PATIENT
  Age: 56 Year
  Sex: Female

DRUGS (3)
  1. ADVAIR DISKUS 100/50 [Suspect]
     Indication: ASTHMA
     Dosage: 1PUFF TWICE PER DAY
     Route: 055
     Dates: start: 20100409, end: 20100429
  2. FLUTICASONE PROPIONATE [Suspect]
     Dosage: 1SPR TWICE PER DAY
     Route: 045
     Dates: start: 20100409, end: 20100429
  3. ZANTAC [Suspect]
     Indication: DRUG USE FOR UNKNOWN INDICATION
     Route: 048
     Dates: start: 20100409

REACTIONS (5)
  - CONTUSION [None]
  - DYSPHONIA [None]
  - SKIN ATROPHY [None]
  - SKIN DISORDER [None]
  - VEIN DISCOLOURATION [None]
